FAERS Safety Report 21568731 (Version 1)
Quarter: 2022Q4

REPORT INFORMATION
  Report Type: Spontaneous
  Country: US (occurrence: None)
  Receive Date: 20221107
  Receipt Date: 20221107
  Transmission Date: 20230112
  Serious: Yes (Hospitalization)
  Sender: FDA-Public Use
  Company Number: None

PATIENT
  Age: 87 Year
  Sex: Male

DRUGS (1)
  1. PREDNISONE [Suspect]
     Active Substance: PREDNISONE
     Dosage: FREQUENCY : DAILY;?
     Route: 048
     Dates: start: 20220830

REACTIONS (5)
  - Tachycardia [None]
  - Chest discomfort [None]
  - Troponin increased [None]
  - Cardiac sarcoidosis [None]
  - Condition aggravated [None]

NARRATIVE: CASE EVENT DATE: 20221019
